FAERS Safety Report 7800597-5 (Version None)
Quarter: 2011Q4

REPORT INFORMATION
  Report Type: 
  Country: None (occurrence: None)
  Receive Date: 20111006
  Receipt Date: 20110927
  Transmission Date: 20120403
  Serious: Yes (Death, Other)
  Sender: FDA-Public Use
  Company Number: IT-ACTELION-A-CH2011-53879

PATIENT
  Sex: Female
  Weight: 59 kg

DRUGS (3)
  1. ZOLEDRONIC ACID [Concomitant]
  2. ZAVESCA [Suspect]
     Dosage: 100 MG, OD
     Route: 048
     Dates: start: 20050526, end: 20050713
  3. ZAVESCA [Suspect]
     Indication: GAUCHER'S DISEASE
     Dosage: 100 MG, BID
     Route: 048
     Dates: start: 20050714, end: 20100418

REACTIONS (1)
  - HEPATIC NEOPLASM MALIGNANT [None]
